FAERS Safety Report 11910843 (Version 1)
Quarter: 2016Q1

REPORT INFORMATION
  Report Type: Spontaneous
  Country: US (occurrence: None)
  Receive Date: 20160111
  Receipt Date: 20160111
  Transmission Date: 20160526
  Serious: Yes (Other)
  Sender: FDA-Public Use
  Company Number: None

PATIENT
  Age: 33 Year
  Sex: Female
  Weight: 83.01 kg

DRUGS (5)
  1. SINGULAIR [Concomitant]
     Active Substance: MONTELUKAST SODIUM
  2. FISH OIL SUPPLEMENTS [Concomitant]
     Active Substance: FISH OIL
  3. ASMANEX [Suspect]
     Active Substance: MOMETASONE FUROATE
     Indication: ASTHMA
     Dosage: I USED TO FREE SAMPLE FROM DR.
     Route: 055
     Dates: start: 20160108, end: 20160108
  4. VENTOLIN [Concomitant]
     Active Substance: ALBUTEROL SULFATE
  5. ALPHA BASE WITH IRON [Concomitant]

REACTIONS (2)
  - Dyspnoea exertional [None]
  - Hypopnoea [None]

NARRATIVE: CASE EVENT DATE: 20160108
